FAERS Safety Report 6065634-X (Version None)
Quarter: 2009Q1

REPORT INFORMATION
  Report Type: 
  Country: None (occurrence: None)
  Receive Date: 20090130
  Receipt Date: 20090115
  Transmission Date: 20090719
  Serious: Yes (Other)
  Sender: FDA-Public Use
  Company Number: 2009S1000940

PATIENT
  Age: 70 Year
  Sex: Female

DRUGS (10)
  1. CLARITHROMYCIN [Suspect]
     Indication: PNEUMONIA
     Dosage: 500 MG; ORAL
     Route: 048
     Dates: start: 20081216, end: 20081216
  2. ALENDRONIC ACID (ALENDRONIC ACID) [Concomitant]
  3. ALLOPURINOL [Concomitant]
  4. AMITRIPTYLINE HYDROCHLORIDE [Concomitant]
  5. ASPIRIN [Concomitant]
  6. ATORVASTATIN CALCIUM [Concomitant]
  7. AUGMENTIN (AUGMENTIN /00756801/) [Concomitant]
  8. ISOSORBIDE MONONITRATE [Concomitant]
  9. OMEPRAZOLE [Concomitant]
  10. TEMAZEPAM [Concomitant]

REACTIONS (3)
  - BODY TEMPERATURE INCREASED [None]
  - HYPERSENSITIVITY [None]
  - HYPOTENSION [None]
